FAERS Safety Report 6666453-3 (Version None)
Quarter: 2010Q2

REPORT INFORMATION
  Report Type: 
  Country: None (occurrence: None)
  Receive Date: 20100402
  Receipt Date: 20100316
  Transmission Date: 20101027
  Serious: Yes (Death, Other)
  Sender: FDA-Public Use
  Company Number: HU-ABBOTT-10P-076-0629545-00

PATIENT
  Sex: Male
  Weight: 85 kg

DRUGS (3)
  1. HUMIRA [Suspect]
     Indication: PSORIATIC ARTHROPATHY
     Route: 058
     Dates: start: 20071001, end: 20090801
  2. METHOTREXATE [Concomitant]
     Indication: PSORIATIC ARTHROPATHY
     Route: 048
     Dates: start: 20060101
  3. CELECOXIB [Concomitant]
     Indication: PSORIATIC ARTHROPATHY
     Route: 048
     Dates: start: 20060101

REACTIONS (15)
  - ARTERIOSCLEROSIS [None]
  - ARTERIOSCLEROSIS CORONARY ARTERY [None]
  - BRAIN OEDEMA [None]
  - CARDIAC ARREST [None]
  - CARDIAC FAILURE ACUTE [None]
  - CONGESTIVE CARDIOMYOPATHY [None]
  - HEPATIC CIRRHOSIS [None]
  - HYPERAEMIA [None]
  - LARYNGEAL HAEMORRHAGE [None]
  - MALAISE [None]
  - MOUTH HAEMORRHAGE [None]
  - NEOPLASM PROSTATE [None]
  - PULMONARY OEDEMA [None]
  - TONGUE HAEMORRHAGE [None]
  - VISCERAL OEDEMA [None]
